FAERS Safety Report 12332121 (Version 4)
Quarter: 2017Q4

REPORT INFORMATION
  Report Type: Spontaneous
  Country: US (occurrence: US)
  Receive Date: 20160504
  Receipt Date: 20171027
  Transmission Date: 20180320
  Serious: No
  Sender: FDA-Public Use
  Company Number: US-ROCHE-1642909

PATIENT
  Sex: Female

DRUGS (11)
  1. OCUVITE PRESERVISION [Concomitant]
  2. NORVASC [Concomitant]
     Active Substance: AMLODIPINE BESYLATE
  3. OMEGA 3 [Concomitant]
     Active Substance: OMEGA-3 FATTY ACIDS
  4. HYDROCHLOROTHIAZIDE. [Concomitant]
     Active Substance: HYDROCHLOROTHIAZIDE
  5. ZOLOFT [Concomitant]
     Active Substance: SERTRALINE HYDROCHLORIDE
  6. PRILOSEC [Concomitant]
     Active Substance: OMEPRAZOLE MAGNESIUM
  7. LISINOPRIL. [Concomitant]
     Active Substance: LISINOPRIL
  8. LOVASTATIN. [Concomitant]
     Active Substance: LOVASTATIN
  9. ESBRIET [Suspect]
     Active Substance: PIRFENIDONE
     Indication: IDIOPATHIC PULMONARY FIBROSIS
     Route: 048
     Dates: start: 20150319
  10. VITAMIN D3 [Concomitant]
     Active Substance: CHOLECALCIFEROL
  11. ESBRIET [Suspect]
     Active Substance: PIRFENIDONE
     Route: 048
     Dates: start: 20160725

REACTIONS (5)
  - Memory impairment [Unknown]
  - Nasopharyngitis [Not Recovered/Not Resolved]
  - Drug dose omission [Unknown]
  - Nausea [Unknown]
  - Fatigue [Not Recovered/Not Resolved]
